FAERS Safety Report 16910616 (Version 1)
Quarter: 2019Q4

REPORT INFORMATION
  Report Type: Spontaneous
  Country: CH (occurrence: CH)
  Receive Date: 20191011
  Receipt Date: 20191011
  Transmission Date: 20200122
  Serious: Yes (Death)
  Sender: FDA-Public Use
  Company Number: CH-BAXTER-2019BAX019780

PATIENT
  Age: 37 Year
  Sex: Male
  Weight: 86 kg

DRUGS (5)
  1. IDARUBICIN [Suspect]
     Active Substance: IDARUBICIN
     Indication: ACUTE LYMPHOCYTIC LEUKAEMIA
     Dosage: INDUCTION THERAPY
     Route: 048
     Dates: start: 20190906
  2. PREDNISON [Suspect]
     Active Substance: PREDNISONE
     Indication: ACUTE LYMPHOCYTIC LEUKAEMIA
     Dosage: INDUCTION THERAPY, ONLY ONE ADMINISTRATION
     Route: 042
     Dates: start: 20190906
  3. ONCASPAR [Suspect]
     Active Substance: PEGASPARGASE
     Indication: ACUTE LYMPHOCYTIC LEUKAEMIA
     Dosage: INDUCTION THERAPY, ONE ADMINISTRATION ONLY, DAY 8
     Route: 042
     Dates: start: 20190913
  4. VINCRISTIN [Suspect]
     Active Substance: VINCRISTINE
     Indication: ACUTE LYMPHOCYTIC LEUKAEMIA
     Dosage: INDUCTION THERAPY, ONLY ONE ADMINISTRATION
     Route: 042
     Dates: start: 20190906
  5. ENDOXAN 1 G. TROCKENSUBSTANZ ZUR INTRAVEN?SEN INFUSION [Suspect]
     Active Substance: CYCLOPHOSPHAMIDE
     Indication: ACUTE LYMPHOCYTIC LEUKAEMIA
     Dosage: INDUCTION THERAPY, ONLY ONE ADMINISTRATION
     Route: 042
     Dates: start: 20190901

REACTIONS (3)
  - Pancreatitis [Fatal]
  - Pseudomonal sepsis [Unknown]
  - Distributive shock [Unknown]

NARRATIVE: CASE EVENT DATE: 20190916
